FAERS Safety Report 17635270 (Version 1)
Quarter: 2020Q2

REPORT INFORMATION
  Report Type: Spontaneous
  Country: DE (occurrence: DE)
  Receive Date: 20200406
  Receipt Date: 20200406
  Transmission Date: 20200713
  Serious: Yes (Hospitalization)
  Sender: FDA-Public Use
  Company Number: DE-009507513-2004DEU000228

PATIENT
  Age: 36 Year
  Sex: Female

DRUGS (3)
  1. OVITRELLE [Suspect]
     Active Substance: CHORIOGONADOTROPIN ALFA
     Indication: ASSISTED REPRODUCTIVE TECHNOLOGY
     Dosage: 250 MICROGRAM
     Dates: start: 20200305
  2. MENOGON [Suspect]
     Active Substance: MENOTROPINS
     Indication: ASSISTED REPRODUCTIVE TECHNOLOGY
     Dosage: 300 INTERNATIONAL UNIT
     Dates: start: 20200227, end: 20200303
  3. ORGALUTRAN [Suspect]
     Active Substance: GANIRELIX ACETATE
     Indication: ASSISTED REPRODUCTIVE TECHNOLOGY
     Dosage: 0.25 MILLIGRAM, QD
     Dates: start: 20200302, end: 20200304

REACTIONS (1)
  - Ovarian haematoma [Recovered/Resolved]

NARRATIVE: CASE EVENT DATE: 20200306
